FAERS Safety Report 17849558 (Version 3)
Quarter: 2020Q3

REPORT INFORMATION
  Report Type: Report from Study
  Country: PK (occurrence: PK)
  Receive Date: 20200602
  Receipt Date: 20200922
  Transmission Date: 20201103
  Serious: Yes (Death, Hospitalization)
  Sender: FDA-Public Use
  Company Number: NVSC2020PK151542

PATIENT
  Age: 51 Year
  Sex: Female

DRUGS (1)
  1. FEMARA [Suspect]
     Active Substance: LETROZOLE
     Indication: BREAST CANCER
     Dosage: 2.5 MG, QD
     Route: 048
     Dates: start: 201911, end: 20200528

REACTIONS (8)
  - Pain [Fatal]
  - Fatigue [Fatal]
  - Loss of consciousness [Fatal]
  - Cardiac arrest [Fatal]
  - Confusional state [Fatal]
  - Platelet count decreased [Fatal]
  - Pyrexia [Fatal]
  - Thrombocytopenia [Unknown]

NARRATIVE: CASE EVENT DATE: 202005
